FAERS Safety Report 13922195 (Version 3)
Quarter: 2022Q4

REPORT INFORMATION
  Report Type: Spontaneous
  Country: IN (occurrence: IN)
  Receive Date: 20170830
  Receipt Date: 20221117
  Transmission Date: 20230113
  Serious: Yes (Hospitalization, Other)
  Sender: FDA-Public Use
  Company Number: IN-SA-2017SA157868

PATIENT
  Age: 15 Year
  Sex: Male

DRUGS (3)
  1. INSULIN GLARGINE [Suspect]
     Active Substance: INSULIN GLARGINE
     Indication: Type 1 diabetes mellitus
     Dosage: HS
  2. INSULIN HUMAN [Suspect]
     Active Substance: INSULIN HUMAN
     Indication: Type 1 diabetes mellitus
     Dosage: BASAL-BOLUS INSULIN
     Route: 058
  3. INSULIN HUMAN [Suspect]
     Active Substance: INSULIN HUMAN
     Dosage: BASAL INSULIN WITH THE 40 IU/ML SYRINGE OUT OF A VIAL OF 100 IU/ML STRENGTH RESULTING INTO 2.5 TIMES
     Route: 030

REACTIONS (8)
  - Diabetic ketoacidosis [Recovered/Resolved]
  - Product dose omission issue [Recovered/Resolved]
  - Lipohypertrophy [Recovering/Resolving]
  - Lack of injection site rotation [Recovering/Resolving]
  - Incorrect route of product administration [Recovering/Resolving]
  - Wrong technique in product usage process [Recovering/Resolving]
  - Incorrect dose administered [Recovering/Resolving]
  - Hyperglycaemia [Unknown]
